FAERS Safety Report 6402232-X (Version None)
Quarter: 2009Q4

REPORT INFORMATION
  Report Type: 
  Country: None (occurrence: None)
  Receive Date: 20091015
  Receipt Date: 20091001
  Transmission Date: 20100525
  Serious: Yes (Other)
  Sender: FDA-Public Use
  Company Number: PHHY2009CA41868

PATIENT
  Sex: Female

DRUGS (7)
  1. DIOVAN [Suspect]
     Indication: HYPERTENSION
     Dosage: 80 MG, QD
     Route: 048
     Dates: start: 20090301
  2. DIOVAN [Suspect]
     Dosage: 160 MG
     Route: 048
     Dates: start: 20090916
  3. DIOVAN [Suspect]
     Dosage: 80 MG, QD
     Dates: start: 20090928
  4. ATENOLOL [Concomitant]
     Dosage: 50MG HALF TABLET BID
  5. WATER PILLS [Concomitant]
     Dosage: UNK
     Dates: end: 20090906
  6. FLUOXETINE [Concomitant]
     Dosage: 20 MG, QD
  7. HYDROCHLOROTHIAZIDE [Concomitant]
     Dosage: 25 MG, QD

REACTIONS (9)
  - ANAEMIA [None]
  - ASTHENIA [None]
  - DIARRHOEA [None]
  - FEELING ABNORMAL [None]
  - GASTROENTERITIS [None]
  - HYPONATRAEMIA [None]
  - NAUSEA [None]
  - PRESYNCOPE [None]
  - VOMITING [None]
